FAERS Safety Report 4441633-6 (Version None)
Quarter: 2004Q3

REPORT INFORMATION
  Report Type: 
  Country: None (occurrence: None)
  Receive Date: 20040907
  Receipt Date: 20040830
  Transmission Date: 20050211
  Serious: Yes (Hospitalization)
  Sender: FDA-Public Use
  Company Number: 200418564GDDC

PATIENT
  Age: 77 Year
  Sex: Female

DRUGS (3)
  1. FLUDEX [Suspect]
     Route: 048
     Dates: end: 20040529
  2. FENOFIBRATE [Suspect]
     Route: 048
     Dates: end: 20040529
  3. ALDACTONE [Suspect]
     Route: 048
     Dates: end: 20040529

REACTIONS (2)
  - BLOOD SODIUM DECREASED [None]
  - RHABDOMYOLYSIS [None]
